FAERS Safety Report 19138327 (Version 3)
Quarter: 2021Q2

REPORT INFORMATION
  Report Type: Report from Study
  Country: BE (occurrence: BE)
  Receive Date: 20210415
  Receipt Date: 20210601
  Transmission Date: 20210717
  Serious: Yes (Hospitalization)
  Sender: FDA-Public Use
  Company Number: BE-BIOGEN-2021BI01000189

PATIENT
  Sex: Male

DRUGS (1)
  1. TECFIDERA [Suspect]
     Active Substance: DIMETHYL FUMARATE
     Indication: RELAPSING-REMITTING MULTIPLE SCLEROSIS
     Dosage: MAINTENANCE DOSE
     Route: 048
     Dates: start: 20201105

REACTIONS (5)
  - Abdominal pain [Recovered/Resolved]
  - Multiple sclerosis relapse [Unknown]
  - Cough [Unknown]
  - Haemoptysis [Unknown]
  - Sinusitis [Unknown]
